FAERS Safety Report 7136576-3 (Version None)
Quarter: 2010Q4

REPORT INFORMATION
  Report Type: 
  Country: None (occurrence: None)
  Receive Date: 20101206
  Receipt Date: 20101124
  Transmission Date: 20110411
  Serious: No
  Sender: FDA-Public Use
  Company Number: US-BIOGENIDEC-2010BI042000

PATIENT
  Age: 41 Year
  Sex: Female

DRUGS (1)
  1. AVONEX [Suspect]
     Indication: MULTIPLE SCLEROSIS
     Route: 030
     Dates: start: 20100612

REACTIONS (5)
  - FATIGUE [None]
  - HYPERTHYROIDISM [None]
  - PALPITATIONS [None]
  - PNEUMONIA [None]
  - TREMOR [None]
